FAERS Safety Report 4693839-9 (Version None)
Quarter: 2005Q2

REPORT INFORMATION
  Report Type: 
  Country: None (occurrence: None)
  Receive Date: 20050616
  Receipt Date: 20050606
  Transmission Date: 20051028
  Serious: Yes (Life-Threatening)
  Sender: FDA-Public Use
  Company Number: 2005086098

PATIENT
  Age: 48 Year
  Sex: Female

DRUGS (8)
  1. CLINDAMYCIN HYDROCHLORIDE [Suspect]
     Indication: CELLULITIS
     Dosage: 1800 MG (450 MG, QID), ORAL
     Route: 048
     Dates: start: 20050504, end: 20050512
  2. METRONIDAZOLE [Suspect]
     Indication: CELLULITIS
     Dosage: 1500 MG (500 MG, TID), INTERVENOUS
     Route: 042
     Dates: start: 20050504, end: 20050512
  3. CEFUROXIME [Suspect]
     Indication: CELLULITIS
     Dosage: 4.5 GRAM (1.5 GRAM, TID), INTRAVENOUS
     Route: 042
     Dates: start: 20050504, end: 20050512
  4. IBUPROFEN [Concomitant]
  5. ENOXAPARIN SODIUM [Concomitant]
  6. PARAFFIN, LIQUID (PARAFFIN, LIQUID) [Concomitant]
  7. TEICOPLANIN (TEICOPLANIN) [Concomitant]
  8. CO-CODAMOL                (CODEINE PHOSPHATE, PARACETAMOL) [Concomitant]

REACTIONS (2)
  - RASH [None]
  - SWOLLEN TONGUE [None]
